FAERS Safety Report 7884770-6 (Version None)
Quarter: 2011Q4

REPORT INFORMATION
  Report Type: 
  Country: None (occurrence: None)
  Receive Date: 20111102
  Receipt Date: 20111026
  Transmission Date: 20120403
  Serious: Yes (Other)
  Sender: FDA-Public Use
  Company Number: AR-ROCHE-1008482

PATIENT
  Sex: Male

DRUGS (1)
  1. LUCENTIS [Suspect]
     Indication: DIABETIC RETINAL OEDEMA
     Route: 050
     Dates: start: 20110621

REACTIONS (4)
  - RETINAL ANEURYSM [None]
  - EYE IRRITATION [None]
  - VISUAL IMPAIRMENT [None]
  - DRUG INEFFECTIVE [None]
